FAERS Safety Report 6123527-3 (Version None)
Quarter: 2009Q1

REPORT INFORMATION
  Report Type: 
  Country: None (occurrence: None)
  Receive Date: 20090318
  Receipt Date: 20090304
  Transmission Date: 20090719
  Serious: Yes (Other)
  Sender: FDA-Public Use
  Company Number: GB-GENENTECH-278688

PATIENT
  Age: 65 Year
  Sex: Female

DRUGS (2)
  1. RAPTIVA [Suspect]
     Indication: DRUG USE FOR UNKNOWN INDICATION
     Dosage: UNK
  2. REMICADE [Suspect]
     Indication: ARTHRITIS
     Dosage: 5 MG/KG, UNK
     Route: 042

REACTIONS (1)
  - DEMYELINATING POLYNEUROPATHY [None]
